FAERS Safety Report 13642379 (Version 2)
Quarter: 2018Q2

REPORT INFORMATION
  Report Type: Spontaneous
  Country: US (occurrence: US)
  Receive Date: 20170612
  Receipt Date: 20180612
  Transmission Date: 20180711
  Serious: No
  Sender: FDA-Public Use
  Company Number: US-SEPTODONT-201603398

PATIENT
  Age: 30 Year
  Sex: Female

DRUGS (2)
  1. KOLORZ [Concomitant]
     Active Substance: SODIUM FLUORIDE
     Route: 061
  2. ZORCAINE [Suspect]
     Active Substance: ARTICAINE HYDROCHLORIDE\EPINEPHRINE BITARTRATE
     Indication: LOCAL ANAESTHESIA
     Dosage: 1.7ML IN LEFT AND 2.5ML IN RIGHT
     Route: 004

REACTIONS (2)
  - Injection site swelling [Recovered/Resolved]
  - Contusion [Recovered/Resolved]

NARRATIVE: CASE EVENT DATE: 20160526
